FAERS Safety Report 9352815 (Version 1)
Quarter: 2013Q2

REPORT INFORMATION
  Report Type: Spontaneous
  Country: US (occurrence: None)
  Receive Date: 20130614
  Receipt Date: 20130614
  Transmission Date: 20140414
  Serious: Yes (Other)
  Sender: FDA-Public Use
  Company Number: None

PATIENT
  Age: 53 Year
  Sex: Female
  Weight: 73.2 kg

DRUGS (2)
  1. LIPOSOMAL [Suspect]
     Dosage: 68MG EVERY 21 DAYS IV
     Route: 042
     Dates: start: 20130515, end: 20130515
  2. LIPOSOMAL DOXORUBICIN [Suspect]

REACTIONS (3)
  - Erythema [None]
  - Chest pain [None]
  - Back pain [None]
